FAERS Safety Report 9037490 (Version 2)
Quarter: 2013Q2

REPORT INFORMATION
  Report Type: Spontaneous
  Country: US (occurrence: US)
  Receive Date: 20130129
  Receipt Date: 20130416
  Transmission Date: 20140414
  Serious: No
  Sender: FDA-Public Use
  Company Number: US-BIOGENIDEC-2013BI007069

PATIENT
  Sex: Male

DRUGS (2)
  1. TYSABRI [Suspect]
     Indication: MULTIPLE SCLEROSIS
     Route: 042
     Dates: start: 20120221, end: 20130402
  2. AVONEX [Concomitant]
     Indication: MULTIPLE SCLEROSIS
     Route: 030
     Dates: start: 19970823

REACTIONS (4)
  - Muscle spasms [Not Recovered/Not Resolved]
  - Depressed mood [Not Recovered/Not Resolved]
  - Visual acuity reduced [Recovered/Resolved]
  - Multiple sclerosis relapse [Recovered/Resolved]
